FAERS Safety Report 7633548-7 (Version None)
Quarter: 2011Q3

REPORT INFORMATION
  Report Type: 
  Country: None (occurrence: None)
  Receive Date: 20110725
  Receipt Date: 20110701
  Transmission Date: 20111222
  Serious: Yes (Hospitalization)
  Sender: FDA-Public Use
  Company Number: US-GLAXOSMITHKLINE-A0730310A

PATIENT
  Age: 57 Year
  Sex: Male
  Weight: 125 kg

DRUGS (3)
  1. AVANDIA [Suspect]
     Indication: DIABETES MELLITUS
     Dosage: 2MG PER DAY
     Route: 048
     Dates: start: 20051201
  2. ALLOPURINOL [Concomitant]
  3. INDAPAMIDE [Concomitant]

REACTIONS (1)
  - MYOCARDIAL INFARCTION [None]
